FAERS Safety Report 10600855 (Version 2)
Quarter: 2014Q4

REPORT INFORMATION
  Report Type: Spontaneous
  Country: US (occurrence: None)
  Receive Date: 20141120
  Receipt Date: 20141216
  Transmission Date: 20150529
  Serious: Yes (Death)
  Sender: FDA-Public Use
  Company Number: INS201411-000261

PATIENT
  Age: 52 Year
  Sex: Male
  Weight: 60.83 kg

DRUGS (11)
  1. ALBUTEROL (ALBUTEROL) [Concomitant]
     Active Substance: ALBUTEROL
  2. SENNOKOT S (DOCUSATE SODIUM, SENNOSIDES) [Concomitant]
  3. SUBSYS [Suspect]
     Active Substance: FENTANYL
     Indication: CANCER PAIN
     Dosage: 1-2 TIMES EVERY 4 H
     Dates: start: 20121227
  4. RELISTOR [Concomitant]
     Active Substance: METHYLNALTREXONE BROMIDE
  5. EXALGO ER (HYDROMORPHONE) [Concomitant]
  6. PHENERGAN [Concomitant]
     Active Substance: PROMETHAZINE HYDROCHLORIDE
  7. ATIVAN [Concomitant]
     Active Substance: LORAZEPAM
  8. DILAUDID [Concomitant]
     Active Substance: HYDROMORPHONE HYDROCHLORIDE
  9. AMLODIPINE [Concomitant]
     Active Substance: AMLODIPINE BESYLATE
  10. CELEXA (CITALOPRAM) [Concomitant]
  11. AFINITOR [Concomitant]
     Active Substance: EVEROLIMUS

REACTIONS (1)
  - Death [None]

NARRATIVE: CASE EVENT DATE: 20130502
